FAERS Safety Report 6804550-X (Version None)
Quarter: 2010Q2

REPORT INFORMATION
  Report Type: 
  Country: None (occurrence: None)
  Receive Date: 20100628
  Receipt Date: 20070627
  Transmission Date: 20101027
  Serious: No
  Sender: FDA-Public Use
  Company Number: US-PFIZER INC-2007033828

PATIENT
  Sex: Female
  Weight: 72.57 kg

DRUGS (1)
  1. XALATAN [Suspect]
     Indication: GLAUCOMA
     Route: 031
     Dates: start: 19980101

REACTIONS (4)
  - EYELASH THICKENING [None]
  - GROWTH OF EYELASHES [None]
  - MUSCLE SPASMS [None]
  - MYALGIA [None]
